FAERS Safety Report 4625147-6 (Version None)
Quarter: 2005Q2

REPORT INFORMATION
  Report Type: 
  Country: None (occurrence: None)
  Receive Date: 20050325
  Receipt Date: 20050124
  Transmission Date: 20051028
  Serious: No
  Sender: FDA-Public Use
  Company Number: USA050189080

PATIENT
  Age: 80 Year
  Sex: Female

DRUGS (2)
  1. FORTEO [Suspect]
     Indication: OSTEOPOROSIS
     Dates: start: 20050101
  2. CALCIUM GLUCONATE [Concomitant]

REACTIONS (4)
  - BONE PAIN [None]
  - CHEST WALL PAIN [None]
  - FATIGUE [None]
  - PAIN IN EXTREMITY [None]
